FAERS Safety Report 7283108-5 (Version None)
Quarter: 2011Q1

REPORT INFORMATION
  Report Type: 
  Country: None (occurrence: None)
  Receive Date: 20110120
  Receipt Date: 20110111
  Transmission Date: 20110831
  Serious: Yes (Hospitalization)
  Sender: FDA-Public Use
  Company Number: OMX-2010-00128

PATIENT
  Age: 73 Year
  Sex: Female
  Weight: 82.5547 kg

DRUGS (5)
  1. ASPIRIN [Concomitant]
  2. APPLICATOR [Concomitant]
  3. HEPARIN [Concomitant]
  4. PLAVIC (CLOPIDOGREL) [Concomitant]
  5. EVICEL [Suspect]
     Indication: HAEMOSTASIS
     Dosage: 6 ML, EPILESIONAL
     Dates: start: 20100921, end: 20100921

REACTIONS (4)
  - VASCULAR GRAFT OCCLUSION [None]
  - PERIPHERAL ARTERIAL OCCLUSIVE DISEASE [None]
  - ARTERIOVENOUS FISTULA [None]
  - CELLULITIS [None]
